FAERS Safety Report 8968099 (Version 3)
Quarter: 2013Q2

REPORT INFORMATION
  Report Type: Spontaneous
  Country: US (occurrence: US)
  Receive Date: 20121218
  Receipt Date: 20130530
  Transmission Date: 20140414
  Serious: No
  Sender: FDA-Public Use
  Company Number: US-PFIZER INC-2012308367

PATIENT
  Age: 43 Year
  Sex: Female
  Weight: 90.7 kg

DRUGS (12)
  1. LYRICA [Suspect]
     Indication: ANXIETY
     Dosage: 150 MG, 3X/DAY
     Route: 048
     Dates: start: 2010, end: 201305
  2. LYRICA [Suspect]
     Dosage: 150 MG, 2X/DAY
     Route: 048
     Dates: start: 201305, end: 20130526
  3. TOPAMAX [Concomitant]
     Dosage: UNK, 2X/DAY
  4. TOPAMAX [Concomitant]
     Dosage: UNK
  5. CYMBALTA [Concomitant]
     Dosage: UNK, 2X/DAY
  6. TRIHEXYPHEN [Concomitant]
     Dosage: UNK, 2X/DAY
  7. PREVACID [Concomitant]
     Dosage: UNK, 2X/DAY
  8. ABILIFY [Concomitant]
     Dosage: UNK, 1X/DAY
  9. KLONOPIN [Concomitant]
     Indication: SLEEP DISORDER
     Dosage: UNK, 1X/DAY
  10. KLONOPIN [Concomitant]
     Dosage: UNK
  11. EFFEXOR [Concomitant]
     Dosage: UNK
  12. NEXIUM [Concomitant]
     Dosage: UNK

REACTIONS (9)
  - Off label use [Recovered/Resolved]
  - Nasopharyngitis [Not Recovered/Not Resolved]
  - Drug withdrawal syndrome [Not Recovered/Not Resolved]
  - Hyperhidrosis [Not Recovered/Not Resolved]
  - Cold sweat [Not Recovered/Not Resolved]
  - Feeling cold [Not Recovered/Not Resolved]
  - Diarrhoea [Not Recovered/Not Resolved]
  - Emotional disorder [Not Recovered/Not Resolved]
  - Feeling hot [Not Recovered/Not Resolved]
